FAERS Safety Report 9348861 (Version 1)
Quarter: 2013Q2

REPORT INFORMATION
  Report Type: Spontaneous
  Country: FR (occurrence: FR)
  Receive Date: 20130614
  Receipt Date: 20130614
  Transmission Date: 20140414
  Serious: Yes (Death)
  Sender: FDA-Public Use
  Company Number: FR-TEVA-412073ISR

PATIENT
  Age: 76 Year
  Sex: Male

DRUGS (2)
  1. FUROSEMIDE TEVA 40MG [Suspect]
     Dates: start: 201301, end: 20130225
  2. FUROSEMIDE TEVA 40MG [Suspect]
     Dates: start: 20130125

REACTIONS (3)
  - Death [Fatal]
  - Acute respiratory failure [Fatal]
  - Cardiac failure [Fatal]
